FAERS Safety Report 8573706-0 (Version None)
Quarter: 2012Q3

REPORT INFORMATION
  Report Type: 
  Country: None (occurrence: None)
  Receive Date: 20120806
  Receipt Date: 20120731
  Transmission Date: 20120928
  Serious: Yes (Hospitalization)
  Sender: FDA-Public Use
  Company Number: US-GLAXOSMITHKLINE-A0984658A

PATIENT
  Age: 61 Year
  Sex: Female

DRUGS (1)
  1. FLOLAN [Suspect]
     Indication: PRODUCT USED FOR UNKNOWN INDICATION
     Dosage: 65NG CONTINUOUS
     Route: 042
     Dates: start: 20111021

REACTIONS (3)
  - FATIGUE [None]
  - DYSPNOEA [None]
  - ABDOMINAL DISTENSION [None]
